FAERS Safety Report 5644683-7 (Version None)
Quarter: 2008Q1

REPORT INFORMATION
  Report Type: 
  Country: None (occurrence: None)
  Receive Date: 20080229
  Receipt Date: 20070523
  Transmission Date: 20080703
  Serious: No
  Sender: FDA-Public Use
  Company Number: A0652615A

PATIENT
  Sex: Male

DRUGS (1)
  1. VALTREX [Suspect]
     Dosage: 2G TWICE PER DAY
     Route: 048

REACTIONS (4)
  - DRUG INEFFECTIVE [None]
  - HYPOAESTHESIA ORAL [None]
  - IMPETIGO [None]
  - ORAL HERPES [None]
